FAERS Safety Report 14245282 (Version 1)
Quarter: 2017Q4

REPORT INFORMATION
  Report Type: Spontaneous
  Country: US (occurrence: US)
  Receive Date: 20171202
  Receipt Date: 20171202
  Transmission Date: 20180321
  Serious: No
  Sender: FDA-Public Use
  Company Number: US-ENDO PHARMACEUTICALS INC-2017-001100

PATIENT
  Age: 64 Year
  Sex: Male

DRUGS (10)
  1. XIAFLEX [Suspect]
     Active Substance: COLLAGENASE CLOSTRIDIUM HISTOLYTICUM
     Dosage: SECOND INJECTION OF THIRD CYCLE
     Route: 026
     Dates: start: 20170301
  2. XIAFLEX [Suspect]
     Active Substance: COLLAGENASE CLOSTRIDIUM HISTOLYTICUM
     Indication: PEYRONIE^S DISEASE
     Dosage: FIRST INJECTION OF FIRST CYCLE
     Route: 026
     Dates: start: 20160902
  3. XIAFLEX [Suspect]
     Active Substance: COLLAGENASE CLOSTRIDIUM HISTOLYTICUM
     Dosage: FIRST INJECTION OF THIRD CYCLE
     Route: 026
     Dates: start: 20161202
  4. BABY ASPIRIN [Concomitant]
     Active Substance: ASPIRIN
     Indication: PRODUCT USED FOR UNKNOWN INDICATION
  5. XIAFLEX [Suspect]
     Active Substance: COLLAGENASE CLOSTRIDIUM HISTOLYTICUM
     Dosage: FIRST INJECTION OF SECOND CYCLE
     Route: 026
     Dates: start: 20161021
  6. LISINOPRIL TABLETS [Concomitant]
     Active Substance: LISINOPRIL
     Indication: HYPERTENSION
  7. XIAFLEX [Suspect]
     Active Substance: COLLAGENASE CLOSTRIDIUM HISTOLYTICUM
     Dosage: SECOND INJECTION OF FIRST CYCLE
     Route: 026
     Dates: start: 20160909
  8. XIAFLEX [Suspect]
     Active Substance: COLLAGENASE CLOSTRIDIUM HISTOLYTICUM
     Dosage: SECOND INJECTION OF SECOND CYCLE
     Route: 026
     Dates: start: 20161028
  9. SIMVASTATIN. [Concomitant]
     Active Substance: SIMVASTATIN
     Indication: HYPERLIPIDAEMIA
  10. DILANTIN [Concomitant]
     Active Substance: PHENYTOIN
     Indication: SEIZURE

REACTIONS (5)
  - Penile swelling [Recovered/Resolved]
  - Penile haematoma [Recovered/Resolved]
  - Inappropriate schedule of drug administration [Recovered/Resolved]
  - Unevaluable event [Unknown]
  - Penile contusion [Recovered/Resolved]

NARRATIVE: CASE EVENT DATE: 201609
